FAERS Safety Report 4289363-8 (Version None)
Quarter: 2004Q1

REPORT INFORMATION
  Report Type: 
  Country: None (occurrence: None)
  Receive Date: 20040203
  Receipt Date: 20021212
  Transmission Date: 20041129
  Serious: Yes (Other)
  Sender: FDA-Public Use
  Company Number: 200227337BWH

PATIENT
  Age: 79 Year
  Sex: Female

DRUGS (6)
  1. AVELOX [Suspect]
     Dosage: 400 MG, QD, ORAL
     Route: 048
     Dates: start: 20021118, end: 20021128
  2. ACTONEL [Concomitant]
  3. ZOCOR [Concomitant]
  4. LOTENSIN [Concomitant]
  5. DYAZIDE [Concomitant]
  6. COUMADIN [Concomitant]

REACTIONS (1)
  - INTERNATIONAL NORMALISED RATIO INCREASED [None]
